FAERS Safety Report 25151102 (Version 1)
Quarter: 2025Q2

REPORT INFORMATION
  Report Type: Spontaneous
  Country: US (occurrence: US)
  Receive Date: 20250402
  Receipt Date: 20250402
  Transmission Date: 20250717
  Serious: No
  Sender: BAYER
  Company Number: US-BAYER-2025A044634

PATIENT
  Age: 34 Year
  Sex: Male

DRUGS (1)
  1. ALEVE BACK AND MUSCLE PAIN [Suspect]
     Active Substance: NAPROXEN SODIUM
     Indication: Pain
     Route: 048
     Dates: start: 20250331, end: 20250331

REACTIONS (2)
  - Drug ineffective [Unknown]
  - Expired product administered [Unknown]
